FAERS Safety Report 7978173-3 (Version None)
Quarter: 2011Q4

REPORT INFORMATION
  Report Type: 
  Country: None (occurrence: None)
  Receive Date: 20111214
  Receipt Date: 20111206
  Transmission Date: 20120403
  Serious: Yes (Life-Threatening, Hospitalization, Other)
  Sender: FDA-Public Use
  Company Number: US-ELI_LILLY_AND_COMPANY-US201103007152

PATIENT
  Sex: Female

DRUGS (8)
  1. FORTEO [Suspect]
     Dosage: 20 UG, QD
  2. GABAPENTIN [Concomitant]
  3. ANTIBIOTICS [Concomitant]
  4. FORTEO [Suspect]
     Dosage: 20 UG, QD
     Dates: end: 20110501
  5. FORTEO [Suspect]
     Dosage: 20 UG, QD
  6. FORTEO [Suspect]
     Indication: OSTEOPOROSIS
     Dosage: 20 UG, QD
     Dates: start: 20110314
  7. FORTEO [Suspect]
     Dosage: 20 UG, QD
     Dates: start: 20110501
  8. FORTEO [Suspect]
     Dosage: 20 UG, QD

REACTIONS (13)
  - HYPERSENSITIVITY [None]
  - CHRONIC OBSTRUCTIVE PULMONARY DISEASE [None]
  - ERYTHEMA [None]
  - SLEEP APNOEA SYNDROME [None]
  - SEDATION [None]
  - HYPERCAPNIA [None]
  - BLISTER [None]
  - ASTHMA [None]
  - GAIT DISTURBANCE [None]
  - WOUND [None]
  - INFECTION [None]
  - PAIN IN EXTREMITY [None]
  - SECRETION DISCHARGE [None]
